FAERS Safety Report 21608465 (Version 1)
Quarter: 2022Q4

REPORT INFORMATION
  Report Type: Spontaneous
  Country: CA (occurrence: CA)
  Receive Date: 20221117
  Receipt Date: 20221117
  Transmission Date: 20230113
  Serious: Yes (Life-Threatening)
  Sender: FDA-Public Use
  Company Number: CA-BAYER-2022A156358

PATIENT
  Age: 84 Year
  Sex: Male

DRUGS (4)
  1. CIPRO [Suspect]
     Active Substance: CIPROFLOXACIN HYDROCHLORIDE
     Indication: Diabetic foot infection
     Dosage: 500 MG
     Route: 048
  2. ERTAPENEM [Suspect]
     Active Substance: ERTAPENEM
     Indication: Diabetic foot infection
     Dosage: 1 G
     Route: 042
  3. RAMIPRIL [Concomitant]
     Active Substance: RAMIPRIL
     Indication: Product used for unknown indication
  4. CLOXACILLIN [Concomitant]
     Active Substance: CLOXACILLIN
     Indication: Diabetic foot infection
     Route: 048

REACTIONS (1)
  - Drug ineffective [Unknown]
